FAERS Safety Report 10219343 (Version 3)
Quarter: 2014Q2

REPORT INFORMATION
  Report Type: Report from Study
  Country: US (occurrence: US)
  Receive Date: 20140605
  Receipt Date: 20140610
  Transmission Date: 20141212
  Serious: Yes (Hospitalization)
  Sender: FDA-Public Use
  Company Number: US-ACTELION-A-NJ2014-94246

PATIENT
  Age: 77 Year
  Sex: Female

DRUGS (3)
  1. MACITENTAN [Suspect]
     Indication: PULMONARY ARTERIAL HYPERTENSION
     Dosage: 10 MG, QD
     Route: 048
     Dates: start: 20140102, end: 20140317
  2. LETAIRIS [Suspect]
     Dosage: 5 MG, QD
     Dates: start: 20140327
  3. ADCIRCA [Concomitant]

REACTIONS (12)
  - Gastrointestinal haemorrhage [Recovering/Resolving]
  - Anaemia [Recovering/Resolving]
  - Haematocrit decreased [Recovering/Resolving]
  - Haemoglobin decreased [Recovering/Resolving]
  - Transfusion [Recovering/Resolving]
  - Pulmonary hypertension [Recovering/Resolving]
  - Fluid retention [Recovering/Resolving]
  - Condition aggravated [Recovering/Resolving]
  - Weight increased [Recovering/Resolving]
  - Oedema peripheral [Unknown]
  - Influenza like illness [Unknown]
  - Oedema [Unknown]
